FAERS Safety Report 25598244 (Version 1)
Quarter: 2025Q3

REPORT INFORMATION
  Report Type: Report from Study
  Country: US (occurrence: US)
  Receive Date: 20250723
  Receipt Date: 20250723
  Transmission Date: 20251021
  Serious: Yes (Hospitalization)
  Sender: SERVIER
  Company Number: US-SERVIER-S25006879

PATIENT

DRUGS (2)
  1. VORASIDENIB [Suspect]
     Active Substance: VORASIDENIB
     Indication: Brain neoplasm malignant
     Dosage: 40 MG, QD
     Route: 048
     Dates: start: 20241101, end: 20241221
  2. VORASIDENIB [Suspect]
     Active Substance: VORASIDENIB
     Dosage: 20 MG, QD
     Route: 048
     Dates: start: 20250120

REACTIONS (4)
  - Fall [Unknown]
  - Joint injury [Unknown]
  - Dry mouth [Unknown]
  - Aphasia [Unknown]

NARRATIVE: CASE EVENT DATE: 20250401
